FAERS Safety Report 19048299 (Version 2)
Quarter: 2021Q1

REPORT INFORMATION
  Report Type: Spontaneous
  Country: SG (occurrence: SG)
  Receive Date: 20210324
  Receipt Date: 20210330
  Transmission Date: 20210420
  Serious: Yes (Other)
  Sender: FDA-Public Use
  Company Number: SG-ORGANON-O2103SGP002434

PATIENT
  Age: 7 Year
  Sex: Female

DRUGS (1)
  1. MOMETASONE FUROATE. [Suspect]
     Active Substance: MOMETASONE FUROATE
     Indication: DERMATITIS ATOPIC
     Dosage: APPROXIMATELY 4 TUBES (15G/TUBE) IN 1 YEAR.
     Route: 061

REACTIONS (2)
  - Cushing^s syndrome [Unknown]
  - Prescription drug used without a prescription [Unknown]
